FAERS Safety Report 6075355-5 (Version None)
Quarter: 2009Q1

REPORT INFORMATION
  Report Type: 
  Country: None (occurrence: None)
  Receive Date: 20090210
  Receipt Date: 20090128
  Transmission Date: 20090719
  Serious: Yes (Other)
  Sender: FDA-Public Use
  Company Number: 2009US000078

PATIENT
  Age: 85 Year
  Sex: Female

DRUGS (15)
  1. LEXISCAN [Suspect]
     Indication: SCAN MYOCARDIAL PERFUSION
     Dosage: /D;
     Dates: start: 20081028, end: 20081028
  2. ALDACTONE [Concomitant]
  3. ASPIRIN [Concomitant]
  4. BENADRYL [Concomitant]
  5. DITROPAN XL [Concomitant]
  6. HYDRODIURIL [Concomitant]
  7. POTASSIUM CHLORIDE [Concomitant]
  8. MACRODANTIN [Concomitant]
  9. MILK OF MAGNESIA [Concomitant]
  10. MULTIVITAMIN [Concomitant]
  11. NITROGLYCERIN [Concomitant]
  12. NITROSTAT [Concomitant]
  13. SYNTHYROID (LEVOTHYROXINE SODIUM) [Concomitant]
  14. TYLENOL [Concomitant]
  15. ZESTRIL [Concomitant]

REACTIONS (6)
  - BRADYCARDIA [None]
  - DIZZINESS [None]
  - HYPOTENSION [None]
  - LOSS OF CONSCIOUSNESS [None]
  - NAUSEA [None]
  - VOMITING [None]
